FAERS Safety Report 7284987-8 (Version None)
Quarter: 2011Q1

REPORT INFORMATION
  Report Type: 
  Country: None (occurrence: None)
  Receive Date: 20110210
  Receipt Date: 20110127
  Transmission Date: 20110831
  Serious: Yes (Hospitalization, Other)
  Sender: FDA-Public Use
  Company Number: US-BAYER-US-2006-008992

PATIENT
  Sex: Female

DRUGS (9)
  1. BETASERON [Suspect]
     Indication: RELAPSING-REMITTING MULTIPLE SCLEROSIS
     Route: 058
     Dates: start: 20040108
  2. ADVAIR [Concomitant]
     Indication: ASTHMA
     Route: 055
  3. KLONOPIN [Concomitant]
     Indication: ANXIETY
  4. BETASERON [Suspect]
     Dosage: 8 MIU, QOD
     Route: 058
     Dates: start: 20101217
  5. SINGULAIR [Concomitant]
     Indication: ASTHMA
     Route: 055
  6. BACLOFEN [Concomitant]
     Indication: MUSCLE SPASMS
     Dosage: 4-5 TIMES DAILY
  7. BETASERON [Suspect]
     Dosage: 8 MIU, QOD
     Route: 058
  8. LYRICA [Concomitant]
     Indication: FIBROMYALGIA
  9. ZOLOFT [Concomitant]
     Indication: ANXIETY

REACTIONS (17)
  - DIARRHOEA [None]
  - WEIGHT DECREASED [None]
  - ARTHRALGIA [None]
  - PAIN IN EXTREMITY [None]
  - STAPHYLOCOCCAL INFECTION [None]
  - PLANTAR FASCIITIS [None]
  - MOBILITY DECREASED [None]
  - INJECTION SITE SCAR [None]
  - NEUROPATHY PERIPHERAL [None]
  - HYPOAESTHESIA [None]
  - MEDICAL DEVICE COMPLICATION [None]
  - ARTHROPATHY [None]
  - GAIT DISTURBANCE [None]
  - HIP ARTHROPLASTY [None]
  - FALL [None]
  - RIB FRACTURE [None]
  - GASTROENTERITIS [None]
